FAERS Safety Report 9543832 (Version 2)
Quarter: 2013Q3

REPORT INFORMATION
  Report Type: Report from Study
  Country: NL (occurrence: NL)
  Receive Date: 20130923
  Receipt Date: 20130923
  Transmission Date: 20140515
  Serious: Yes (Hospitalization, Other)
  Sender: FDA-Public Use
  Company Number: NL-SANOFI-AVENTIS-CLOF-1002604

PATIENT
  Age: 52 Year
  Sex: Female
  Weight: 65 kg

DRUGS (7)
  1. CLOFARABINE [Suspect]
     Indication: ACUTE LYMPHOCYTIC LEUKAEMIA
     Dosage: 59 MG, QD
     Route: 065
     Dates: start: 20130330, end: 20130403
  2. PREDNISOLONE [Suspect]
     Indication: ACUTE LYMPHOCYTIC LEUKAEMIA
     Dosage: 40 MG, BID
     Route: 048
     Dates: start: 20130406, end: 20130419
  3. DOXORUBICIN [Suspect]
     Indication: ACUTE LYMPHOCYTIC LEUKAEMIA
     Dosage: 76 MG, UNK
     Route: 042
     Dates: start: 20130413, end: 20130413
  4. METHOTREXATE [Suspect]
     Indication: ACUTE LYMPHOCYTIC LEUKAEMIA
     Dosage: 15 MG, UNK
     Route: 037
     Dates: start: 20130404, end: 20130417
  5. DEXAMETHASONE [Suspect]
     Indication: ACUTE LYMPHOCYTIC LEUKAEMIA
     Dosage: 4 MG, UNK
     Route: 037
     Dates: start: 20130404, end: 20130417
  6. SULFAMETHOXAZOLE/TRIMETHOPRIM [Concomitant]
     Route: 048
     Dates: start: 20130329, end: 20130501
  7. VALACICLOVIR [Concomitant]
     Route: 048
     Dates: start: 20130426, end: 20130501

REACTIONS (3)
  - Embolism [Recovered/Resolved]
  - Cerebral infarction [Unknown]
  - Device related infection [Recovered/Resolved]
